FAERS Safety Report 10065528 (Version 1)
Quarter: 2014Q2

REPORT INFORMATION
  Report Type: Spontaneous
  Country: US (occurrence: None)
  Receive Date: 20140401
  Receipt Date: 20140401
  Transmission Date: 20141212
  Serious: Yes (Other)
  Sender: FDA-Public Use
  Company Number: PHEH2013US021090

PATIENT
  Age: 75 Year
  Sex: Male

DRUGS (10)
  1. EXELON PATCH [Suspect]
     Route: 062
  2. NAMENDA (MEMANTINE HYDROCHLORIDE) [Concomitant]
  3. ASPIRIN (ACETYLSALICYLIC ACID) [Concomitant]
  4. VITAMIN E (TOCOPHEROL) [Concomitant]
  5. SANCTURA [Concomitant]
  6. LIPITOR (ATORVASTATIN CALCIUM) [Concomitant]
  7. OMEGA (DIETARY SUPPLEMENT) [Concomitant]
  8. PLAVIX (CLOPIDOGREL BISULFATE) (CLOPIDOGREL BISULFATE) [Concomitant]
  9. CARBIDOPA [Concomitant]
  10. METOPROLOL (METOPROLOL) [Concomitant]

REACTIONS (1)
  - Cerebrovascular accident [None]
